FAERS Safety Report 4829311-2 (Version None)
Quarter: 2005Q4

REPORT INFORMATION
  Report Type: 
  Country: None (occurrence: None)
  Receive Date: 20051028
  Receipt Date: 20050928
  Transmission Date: 20060501
  Serious: Yes (Hospitalization)
  Sender: FDA-Public Use
  Company Number: COT_0219_2005

PATIENT
  Age: 5 Year
  Sex: Female
  Weight: 18 kg

DRUGS (6)
  1. VENTAVIS [Suspect]
     Indication: PULMONARY HYPERTENSION
     Dosage: 5 MCG VARIABLE  IH
     Route: 055
     Dates: start: 20050920
  2. VENTAVIS [Suspect]
     Indication: PULMONARY HYPERTENSION
     Dosage: 2.5 MCG VARIABLE IH
     Route: 055
     Dates: start: 20050916, end: 20050920
  3. TRACLEER [Concomitant]
  4. FLOVENT [Concomitant]
  5. XOPENEX [Concomitant]
  6. PROCARDIA [Concomitant]

REACTIONS (1)
  - HEADACHE [None]
